FAERS Safety Report 14265729 (Version 2)
Quarter: 2017Q4

REPORT INFORMATION
  Report Type: Report from Study
  Country: None (occurrence: US)
  Receive Date: 20171208
  Receipt Date: 20171229
  Transmission Date: 20180321
  Serious: Yes (Hospitalization, Other)
  Sender: FDA-Public Use
  Company Number: US-ABBVIE-17K-163-2186840-00

PATIENT
  Age: 25 Year
  Sex: Female
  Weight: 56.75 kg

DRUGS (3)
  1. HUMIRA [Suspect]
     Active Substance: ADALIMUMAB
     Indication: PSORIATIC ARTHROPATHY
     Route: 058
     Dates: end: 201707
  2. FOLIC ACID. [Concomitant]
     Active Substance: FOLIC ACID
     Indication: PRODUCT USED FOR UNKNOWN INDICATION
  3. HUMIRA [Suspect]
     Active Substance: ADALIMUMAB
     Indication: JUVENILE IDIOPATHIC ARTHRITIS
     Route: 058
     Dates: start: 2017

REACTIONS (7)
  - Volvulus [Recovered/Resolved]
  - Ovarian cyst ruptured [Recovered/Resolved]
  - Joint effusion [Recovered/Resolved]
  - Nausea [Recovered/Resolved]
  - Psoriatic arthropathy [Unknown]
  - Pelvic fluid collection [Recovered/Resolved]
  - Appendicectomy [Unknown]

NARRATIVE: CASE EVENT DATE: 2017
